FAERS Safety Report 9015963 (Version 3)
Quarter: 2013Q3

REPORT INFORMATION
  Report Type: Spontaneous
  Country: CH (occurrence: CH)
  Receive Date: 20130116
  Receipt Date: 20130902
  Transmission Date: 20140515
  Serious: Yes (Other)
  Sender: FDA-Public Use
  Company Number: PHHY2013CH001880

PATIENT
  Sex: 0

DRUGS (13)
  1. TASIGNA [Suspect]
     Indication: CHRONIC MYELOID LEUKAEMIA
     Dosage: 800 MG, DAILY
     Route: 048
     Dates: start: 20090722, end: 20091014
  2. TASIGNA [Suspect]
     Dosage: 600 MG, DAILY
     Route: 048
     Dates: start: 20091014, end: 20100413
  3. TASIGNA [Suspect]
     Dosage: 400 MG, DAILY
     Route: 048
     Dates: start: 20100414, end: 20110515
  4. TASIGNA [Suspect]
     Dosage: 450 MG, DAILY
     Route: 048
     Dates: start: 20110516, end: 20111013
  5. TASIGNA [Suspect]
     Dosage: 200 MG, BID
     Route: 048
     Dates: start: 20090722
  6. TASIGNA [Suspect]
     Dosage: 400 MG, DAILY
     Route: 048
     Dates: end: 20121210
  7. ASPIRIN [Suspect]
  8. DALACIN [Suspect]
  9. CIPROXIN [Suspect]
  10. LOSARTAN PLUS [Concomitant]
     Dosage: 1 DF, DAILY
  11. LOSARTAN PLUS [Concomitant]
     Dosage: 100 MG, QD
     Route: 048
  12. MARCOUMAR [Concomitant]
     Route: 048
  13. NEBILET [Concomitant]
     Route: 048

REACTIONS (10)
  - Microangiopathy [Unknown]
  - Necrosis [Not Recovered/Not Resolved]
  - Skin lesion [Unknown]
  - Petechiae [Unknown]
  - Erythema [Unknown]
  - Peripheral arterial occlusive disease [Unknown]
  - Atrial fibrillation [Unknown]
  - Skin infection [Unknown]
  - Folliculitis [Unknown]
  - Tremor [Unknown]
